FAERS Safety Report 25446342 (Version 1)
Quarter: 2025Q2

REPORT INFORMATION
  Report Type: Spontaneous
  Country: CA (occurrence: CA)
  Receive Date: 20250617
  Receipt Date: 20250617
  Transmission Date: 20250717
  Serious: Yes (Other)
  Sender: ORGANON
  Company Number: CA-ORGANON-O2506CAN001273

PATIENT
  Age: 41 Year
  Sex: Female

DRUGS (161)
  1. NASONEX [Suspect]
     Active Substance: MOMETASONE FUROATE
     Indication: Product used for unknown indication
     Dosage: 2 DOSAGE FORM, BID (2 EVERY 1 DAYS)
     Route: 065
  2. NASONEX [Suspect]
     Active Substance: MOMETASONE FUROATE
     Indication: Migraine
     Route: 065
  3. NASONEX [Suspect]
     Active Substance: MOMETASONE FUROATE
     Route: 065
  4. NASONEX [Suspect]
     Active Substance: MOMETASONE FUROATE
     Dosage: 2 DOSAGE FORM, BID (2 EVERY 1 DAYS)
     Route: 065
  5. MAXALT [Suspect]
     Active Substance: RIZATRIPTAN BENZOATE
     Indication: Product used for unknown indication
     Route: 065
  6. MAXALT [Suspect]
     Active Substance: RIZATRIPTAN BENZOATE
     Dosage: UNK, QD (1 EVERY 1 DAYS)
     Route: 065
  7. MAXALT [Suspect]
     Active Substance: RIZATRIPTAN BENZOATE
     Dosage: 1 DOSAGE FORM, QD (1 EVERY 1 DAYS)
     Route: 065
  8. ACETAMINOPHEN [Suspect]
     Active Substance: ACETAMINOPHEN
     Indication: Product used for unknown indication
     Route: 065
  9. AMOXICILLIN TRIHYDRATE [Suspect]
     Active Substance: AMOXICILLIN
     Indication: Product used for unknown indication
     Route: 065
  10. AMOXICILLIN TRIHYDRATE [Suspect]
     Active Substance: AMOXICILLIN
     Route: 065
  11. AMOXICILLIN TRIHYDRATE [Suspect]
     Active Substance: AMOXICILLIN
     Route: 065
  12. BOTULINUM TOXIN TYPE A [Suspect]
     Active Substance: BOTULINUM TOXIN TYPE A
     Indication: Product used for unknown indication
     Route: 065
  13. BOTULINUM TOXIN TYPE A [Suspect]
     Active Substance: BOTULINUM TOXIN TYPE A
     Route: 065
  14. BOTULINUM TOXIN TYPE A [Suspect]
     Active Substance: BOTULINUM TOXIN TYPE A
     Route: 065
  15. BOTULINUM TOXIN TYPE A [Suspect]
     Active Substance: BOTULINUM TOXIN TYPE A
     Route: 065
  16. BOTULINUM TOXIN TYPE A [Suspect]
     Active Substance: BOTULINUM TOXIN TYPE A
     Route: 065
  17. BOTULINUM TOXIN TYPE A [Suspect]
     Active Substance: BOTULINUM TOXIN TYPE A
     Route: 065
  18. CIPROFLOXACIN HYDROCHLORIDE [Suspect]
     Active Substance: CIPROFLOXACIN HYDROCHLORIDE
     Indication: Migraine
     Route: 048
  19. CIPROFLOXACIN HYDROCHLORIDE [Suspect]
     Active Substance: CIPROFLOXACIN HYDROCHLORIDE
     Route: 048
  20. CIPROFLOXACIN HYDROCHLORIDE [Suspect]
     Active Substance: CIPROFLOXACIN HYDROCHLORIDE
     Route: 065
  21. CIPROFLOXACIN HYDROCHLORIDE [Suspect]
     Active Substance: CIPROFLOXACIN HYDROCHLORIDE
     Route: 065
  22. CLARITHROMYCIN [Suspect]
     Active Substance: CLARITHROMYCIN
     Indication: Product used for unknown indication
     Dosage: 1 DOSAGE FORM, BID (2 EVERY 1 DAYS)
     Route: 065
  23. CLARITHROMYCIN [Suspect]
     Active Substance: CLARITHROMYCIN
     Route: 065
  24. CLARITHROMYCIN [Suspect]
     Active Substance: CLARITHROMYCIN
     Route: 065
  25. CODEINE [Suspect]
     Active Substance: CODEINE
     Indication: Migraine
     Route: 065
  26. CODEINE [Suspect]
     Active Substance: CODEINE
     Route: 065
  27. DEXAMETHASONE [Suspect]
     Active Substance: DEXAMETHASONE
     Indication: Migraine
     Route: 065
  28. DEXAMETHASONE [Suspect]
     Active Substance: DEXAMETHASONE
     Route: 065
  29. DULOXETINE HYDROCHLORIDE [Suspect]
     Active Substance: DULOXETINE HYDROCHLORIDE
     Indication: Migraine
     Route: 065
  30. DULOXETINE HYDROCHLORIDE [Suspect]
     Active Substance: DULOXETINE HYDROCHLORIDE
     Indication: Migraine
     Route: 065
  31. ESCITALOPRAM OXALATE [Suspect]
     Active Substance: ESCITALOPRAM OXALATE
     Indication: Migraine
     Route: 065
  32. ESOMEPRAZOLE [Suspect]
     Active Substance: ESOMEPRAZOLE
     Indication: Product used for unknown indication
     Route: 065
  33. ESOMEPRAZOLE [Suspect]
     Active Substance: ESOMEPRAZOLE
     Route: 065
  34. FLUCONAZOLE [Suspect]
     Active Substance: FLUCONAZOLE
     Indication: Migraine
     Route: 065
  35. HYDROMORPHONE [Suspect]
     Active Substance: HYDROMORPHONE
     Indication: Migraine
     Dosage: 1 DOSAGE FORM, BID (2 EVERY 1 DAYS)
     Route: 065
  36. HYDROMORPHONE [Suspect]
     Active Substance: HYDROMORPHONE
     Dosage: 1 DOSAGE FORM, BID (2 EVERY 1 DAYS)
     Route: 065
  37. HYDROMORPHONE [Suspect]
     Active Substance: HYDROMORPHONE
     Dosage: 1 DOSAGE FORM, BID (2 EVERY 1 DAYS)
     Route: 065
  38. HYDROMORPHONE [Suspect]
     Active Substance: HYDROMORPHONE
     Dosage: 1 DOSAGE FORM, BID (2 EVERY 1 DAYS)
     Route: 065
  39. HYDROMORPHONE [Suspect]
     Active Substance: HYDROMORPHONE
     Dosage: 1 DOSAGE FORM, BID (2 EVERY 1 DAYS)
     Route: 065
  40. HYDROMORPHONE [Suspect]
     Active Substance: HYDROMORPHONE
     Dosage: 1 DOSAGE FORM, BID (2 EVERY 1 DAYS)
     Route: 065
  41. HYDROMORPHONE [Suspect]
     Active Substance: HYDROMORPHONE
     Dosage: 1 DOSAGE FORM, BID (2 EVERY 1 DAYS)
     Route: 065
  42. HYDROMORPHONE [Suspect]
     Active Substance: HYDROMORPHONE
     Dosage: 1 DOSAGE FORM, BID (2 EVERY 1 DAYS)
     Route: 065
  43. HYDROMORPHONE [Suspect]
     Active Substance: HYDROMORPHONE
     Dosage: 1 DOSAGE FORM, BID (2 EVERY 1 DAYS)
     Route: 065
  44. HYDROMORPHONE [Suspect]
     Active Substance: HYDROMORPHONE
     Dosage: 1 DOSAGE FORM, BID (2 EVERY 1 DAYS)
     Route: 065
  45. HYDROMORPHONE [Suspect]
     Active Substance: HYDROMORPHONE
     Dosage: 1 DOSAGE FORM, BID (2 EVERY 1 DAYS)
     Route: 065
  46. INDOMETHACIN [Suspect]
     Active Substance: INDOMETHACIN
     Indication: Migraine
     Route: 054
  47. INDOMETHACIN [Suspect]
     Active Substance: INDOMETHACIN
     Indication: Migraine
     Dosage: 1 DOSAGE FORM, BID (2 EVERY 1 DAYS)
     Route: 054
  48. INDOMETHACIN [Suspect]
     Active Substance: INDOMETHACIN
     Route: 054
  49. INDOMETHACIN [Suspect]
     Active Substance: INDOMETHACIN
     Route: 054
  50. INDOMETHACIN [Suspect]
     Active Substance: INDOMETHACIN
     Route: 054
  51. INDOMETHACIN [Suspect]
     Active Substance: INDOMETHACIN
     Route: 054
  52. INDOMETHACIN [Suspect]
     Active Substance: INDOMETHACIN
     Route: 054
  53. INDOMETHACIN [Suspect]
     Active Substance: INDOMETHACIN
     Route: 054
  54. INDOMETHACIN [Suspect]
     Active Substance: INDOMETHACIN
     Route: 054
  55. INDOMETHACIN [Suspect]
     Active Substance: INDOMETHACIN
     Route: 054
  56. INDOMETHACIN [Suspect]
     Active Substance: INDOMETHACIN
     Route: 054
  57. INDOMETHACIN [Suspect]
     Active Substance: INDOMETHACIN
     Route: 054
  58. INDOMETHACIN [Suspect]
     Active Substance: INDOMETHACIN
     Route: 054
  59. INDOMETHACIN [Suspect]
     Active Substance: INDOMETHACIN
     Dosage: 1 DOSAGE FORM, BID (2 EVERY 1 DAYS)
     Route: 054
  60. INDOMETHACIN [Suspect]
     Active Substance: INDOMETHACIN
     Dosage: 1 DOSAGE FORM, BID (2 EVERY 1 DAYS)
     Route: 054
  61. INDOMETHACIN [Suspect]
     Active Substance: INDOMETHACIN
     Route: 054
  62. INDOMETHACIN [Suspect]
     Active Substance: INDOMETHACIN
     Route: 054
  63. INDOMETHACIN [Suspect]
     Active Substance: INDOMETHACIN
     Dosage: 1 DOSAGE FORM, BID (2 EVERY 1 DAYS)
     Route: 054
  64. INDOMETHACIN [Suspect]
     Active Substance: INDOMETHACIN
     Dosage: 1 DOSAGE FORM, BID (2 EVERY 1 DAYS)
     Route: 054
  65. INDOMETHACIN [Suspect]
     Active Substance: INDOMETHACIN
     Dosage: 1 DOSAGE FORM, BID (2 EVERY 1 DAYS)
     Route: 054
  66. INDOMETHACIN [Suspect]
     Active Substance: INDOMETHACIN
     Dosage: 1 DOSAGE FORM, BID (2 EVERY 1 DAYS)
     Route: 054
  67. INDOMETHACIN [Suspect]
     Active Substance: INDOMETHACIN
     Dosage: 1 DOSAGE FORM, BID (2 EVERY 1 DAYS)
     Route: 054
  68. INDOMETHACIN [Suspect]
     Active Substance: INDOMETHACIN
     Dosage: 1 DOSAGE FORM, BID (2 EVERY 1 DAYS)
     Route: 054
  69. INDOMETHACIN [Suspect]
     Active Substance: INDOMETHACIN
     Dosage: 1 DOSAGE FORM, BID (2 EVERY 1 DAYS)
     Route: 054
  70. INDOMETHACIN [Suspect]
     Active Substance: INDOMETHACIN
     Dosage: 1 DOSAGE FORM, BID (2 EVERY 1 DAYS)
     Route: 054
  71. LANSOPRAZOLE [Suspect]
     Active Substance: LANSOPRAZOLE
     Indication: Migraine
     Route: 065
  72. LISINOPRIL [Suspect]
     Active Substance: LISINOPRIL
     Indication: Migraine
     Route: 065
  73. LISINOPRIL [Suspect]
     Active Substance: LISINOPRIL
     Route: 065
  74. LISINOPRIL [Suspect]
     Active Substance: LISINOPRIL
     Dosage: 1 DOSAGE FORM, QD (1 EVERY 1 DAYS)
     Route: 048
  75. METOCLOPRAMIDE [Suspect]
     Active Substance: METOCLOPRAMIDE
     Indication: Migraine
     Route: 065
  76. METOCLOPRAMIDE [Suspect]
     Active Substance: METOCLOPRAMIDE
     Route: 065
  77. AZITHROMYCIN ANHYDROUS [Suspect]
     Active Substance: AZITHROMYCIN ANHYDROUS
     Indication: Product used for unknown indication
     Route: 065
  78. AZITHROMYCIN ANHYDROUS [Suspect]
     Active Substance: AZITHROMYCIN ANHYDROUS
     Indication: Migraine
     Route: 065
  79. AZITHROMYCIN ANHYDROUS [Suspect]
     Active Substance: AZITHROMYCIN ANHYDROUS
     Route: 065
  80. AZITHROMYCIN ANHYDROUS [Suspect]
     Active Substance: AZITHROMYCIN ANHYDROUS
     Route: 065
  81. PROPRANOLOL [Suspect]
     Active Substance: PROPRANOLOL HYDROCHLORIDE
     Indication: Migraine
     Route: 065
  82. PROPRANOLOL [Suspect]
     Active Substance: PROPRANOLOL HYDROCHLORIDE
     Route: 065
  83. PROPRANOLOL [Suspect]
     Active Substance: PROPRANOLOL HYDROCHLORIDE
     Route: 065
  84. PREDNISONE [Suspect]
     Active Substance: PREDNISONE
     Indication: Product used for unknown indication
     Route: 065
  85. PREDNISONE [Suspect]
     Active Substance: PREDNISONE
     Dosage: 2 DOSAGE FORM, QD (1 EVERY 1 DAYS)
     Route: 065
  86. RABEPRAZOLE [Suspect]
     Active Substance: RABEPRAZOLE
     Indication: Migraine
     Dosage: 1 DOSAGE FORM, BID (2 EVERY 1 DAYS)
     Route: 065
  87. RABEPRAZOLE [Suspect]
     Active Substance: RABEPRAZOLE
     Dosage: 1 DOSAGE FORM, BID (2 EVERY 1 DAYS)
     Route: 065
  88. RABEPRAZOLE [Suspect]
     Active Substance: RABEPRAZOLE
     Dosage: 1 DOSAGE FORM, BID (2 EVERY 1 DAYS)
     Route: 065
  89. RABEPRAZOLE [Suspect]
     Active Substance: RABEPRAZOLE
     Dosage: 1 DOSAGE FORM, BID (2 EVERY 1 DAYS)
     Route: 065
  90. RABEPRAZOLE [Suspect]
     Active Substance: RABEPRAZOLE
     Dosage: 1 DOSAGE FORM, BID (2 EVERY 1 DAYS)
     Route: 065
  91. RABEPRAZOLE [Suspect]
     Active Substance: RABEPRAZOLE
     Dosage: 1 DOSAGE FORM, BID (2 EVERY 1 DAYS)
     Route: 065
  92. RABEPRAZOLE [Suspect]
     Active Substance: RABEPRAZOLE
     Dosage: 1 DOSAGE FORM, BID (2 EVERY 1 DAYS)
     Route: 065
  93. RABEPRAZOLE [Suspect]
     Active Substance: RABEPRAZOLE
     Dosage: 1 DOSAGE FORM, BID (2 EVERY 1 DAYS)
     Route: 065
  94. RABEPRAZOLE [Suspect]
     Active Substance: RABEPRAZOLE
     Dosage: 1 DOSAGE FORM, BID (2 EVERY 1 DAYS)
     Route: 065
  95. RABEPRAZOLE [Suspect]
     Active Substance: RABEPRAZOLE
     Dosage: 1 DOSAGE FORM, BID (2 EVERY 1 DAYS)
     Route: 065
  96. RABEPRAZOLE [Suspect]
     Active Substance: RABEPRAZOLE
     Dosage: 1 DOSAGE FORM, BID (2 EVERY 1 DAYS)
     Route: 065
  97. RABEPRAZOLE [Suspect]
     Active Substance: RABEPRAZOLE
     Dosage: 1 DOSAGE FORM, BID (2 EVERY 1 DAYS)
     Route: 065
  98. RABEPRAZOLE [Suspect]
     Active Substance: RABEPRAZOLE
     Route: 065
  99. RABEPRAZOLE [Suspect]
     Active Substance: RABEPRAZOLE
     Dosage: 1 DOSAGE FORM, BID (2 EVERY 1 DAYS)
     Route: 065
  100. RABEPRAZOLE [Suspect]
     Active Substance: RABEPRAZOLE
     Dosage: 1 DOSAGE FORM, BID (2 EVERY 1 DAYS)
     Route: 065
  101. RABEPRAZOLE [Suspect]
     Active Substance: RABEPRAZOLE
     Dosage: 1 DOSAGE FORM, BID (2 EVERY 1 DAYS)
     Route: 065
  102. RABEPRAZOLE [Suspect]
     Active Substance: RABEPRAZOLE
     Dosage: 1 DOSAGE FORM, BID (2 EVERY 1 DAYS)
     Route: 065
  103. RABEPRAZOLE [Suspect]
     Active Substance: RABEPRAZOLE
     Dosage: 1 DOSAGE FORM, BID (2 EVERY 1 DAYS)
     Route: 065
  104. RABEPRAZOLE [Suspect]
     Active Substance: RABEPRAZOLE
     Dosage: 1 DOSAGE FORM, BID (2 EVERY 1 DAYS)
     Route: 065
  105. RABEPRAZOLE [Suspect]
     Active Substance: RABEPRAZOLE
     Dosage: 1 DOSAGE FORM, BID (2 EVERY 1 DAYS)
     Route: 065
  106. ALBUTEROL [Suspect]
     Active Substance: ALBUTEROL
     Indication: Product used for unknown indication
     Dosage: 4 DOSAGE FORM, QD (1 EVERY 1 DAY)
     Route: 065
  107. ALBUTEROL [Suspect]
     Active Substance: ALBUTEROL
     Indication: Product used for unknown indication
     Route: 065
  108. SCOPOLAMINE HYDROBROMIDE [Suspect]
     Active Substance: SCOPOLAMINE HYDROBROMIDE
     Indication: Migraine
     Route: 065
  109. SERTRALINE HYDROCHLORIDE [Suspect]
     Active Substance: SERTRALINE HYDROCHLORIDE
     Indication: Migraine
     Route: 065
  110. SERTRALINE HYDROCHLORIDE [Suspect]
     Active Substance: SERTRALINE HYDROCHLORIDE
     Indication: Migraine
     Route: 065
  111. SUMATRIPTAN SUCCINATE [Suspect]
     Active Substance: SUMATRIPTAN SUCCINATE
     Indication: Migraine
     Route: 065
  112. SUMATRIPTAN SUCCINATE [Suspect]
     Active Substance: SUMATRIPTAN SUCCINATE
     Route: 065
  113. TOPIRAMATE [Suspect]
     Active Substance: TOPIRAMATE
     Indication: Migraine
     Route: 065
  114. TOPIRAMATE [Suspect]
     Active Substance: TOPIRAMATE
     Route: 065
  115. TRAMADOL HYDROCHLORIDE [Suspect]
     Active Substance: TRAMADOL HYDROCHLORIDE
     Indication: Product used for unknown indication
  116. TRAMADOL HYDROCHLORIDE [Suspect]
     Active Substance: TRAMADOL HYDROCHLORIDE
  117. TRIMETHOPRIM [Suspect]
     Active Substance: TRIMETHOPRIM
     Indication: Product used for unknown indication
     Route: 065
  118. VENLAFAXINE HYDROCHLORIDE [Suspect]
     Active Substance: VENLAFAXINE HYDROCHLORIDE
     Indication: Product used for unknown indication
     Route: 065
  119. VENLAFAXINE HYDROCHLORIDE [Suspect]
     Active Substance: VENLAFAXINE HYDROCHLORIDE
     Route: 065
  120. ZOLMITRIPTAN [Suspect]
     Active Substance: ZOLMITRIPTAN
     Indication: Product used for unknown indication
     Route: 065
  121. ZOPICLONE [Suspect]
     Active Substance: ZOPICLONE
     Indication: Migraine
     Dosage: 1 DOSAGE FORM, QD (1 EVERY 1 DAYS)
     Route: 065
  122. ZOPICLONE [Suspect]
     Active Substance: ZOPICLONE
     Dosage: 1 DOSAGE FORM, QD (1 EVERY 1 DAYS)
     Route: 065
  123. ZOPICLONE [Suspect]
     Active Substance: ZOPICLONE
     Dosage: 1 DOSAGE FORM, QD (1 EVERY 1 DAYS)
     Route: 065
  124. ZOPICLONE [Suspect]
     Active Substance: ZOPICLONE
     Dosage: 1 DOSAGE FORM, QD (1 EVERY 1 DAYS)
     Route: 065
  125. ZOPICLONE [Suspect]
     Active Substance: ZOPICLONE
     Dosage: 1 DOSAGE FORM, QD (1 EVERY 1 DAYS)
     Route: 065
  126. ZOPICLONE [Suspect]
     Active Substance: ZOPICLONE
     Dosage: 1 DOSAGE FORM, QD (1 EVERY 1 DAYS)
     Route: 065
  127. ZOPICLONE [Suspect]
     Active Substance: ZOPICLONE
     Dosage: 1 DOSAGE FORM, QD (1 EVERY 1 DAYS)
     Route: 065
  128. ZOPICLONE [Suspect]
     Active Substance: ZOPICLONE
     Dosage: 1 DOSAGE FORM, QD (1 EVERY 1 DAYS)
     Route: 065
  129. ZOPICLONE [Suspect]
     Active Substance: ZOPICLONE
     Route: 065
  130. ZOPICLONE [Suspect]
     Active Substance: ZOPICLONE
     Dosage: 1 DOSAGE FORM, QD (1 EVERY 1 DAYS)
     Route: 065
  131. ZOPICLONE [Suspect]
     Active Substance: ZOPICLONE
     Dosage: 1 DOSAGE FORM, QD (1 EVERY 1 DAYS)
     Route: 065
  132. ZOPICLONE [Suspect]
     Active Substance: ZOPICLONE
     Dosage: 1 DOSAGE FORM, QD (1 EVERY 1 DAYS)
     Route: 065
  133. ZOPICLONE [Suspect]
     Active Substance: ZOPICLONE
     Dosage: 1 DOSAGE FORM, QD (1 EVERY 1 DAYS)
     Route: 065
  134. ZOPICLONE [Suspect]
     Active Substance: ZOPICLONE
     Dosage: 1 DOSAGE FORM, QD (1 EVERY 1 DAYS)
     Route: 065
  135. ZOPICLONE [Suspect]
     Active Substance: ZOPICLONE
     Dosage: 1 DOSAGE FORM, QD (1 EVERY 1 DAYS)
     Route: 065
  136. ZOPICLONE [Suspect]
     Active Substance: ZOPICLONE
     Dosage: 1 DOSAGE FORM, QD (1 EVERY 1 DAYS)
     Route: 065
  137. ZOPICLONE [Suspect]
     Active Substance: ZOPICLONE
     Dosage: 1 DOSAGE FORM, QD (1 EVERY 1 DAYS)
     Route: 065
  138. ZOPICLONE [Suspect]
     Active Substance: ZOPICLONE
     Dosage: 1 DOSAGE FORM, QD (1 EVERY 1 DAYS)
     Route: 065
  139. ZOPICLONE [Suspect]
     Active Substance: ZOPICLONE
     Dosage: 1 DOSAGE FORM, QD (1 EVERY 1 DAYS)
     Route: 065
  140. ZOPICLONE [Suspect]
     Active Substance: ZOPICLONE
     Dosage: 1 DOSAGE FORM, QD (1 EVERY 1 DAYS)
     Route: 065
  141. ZOPICLONE [Suspect]
     Active Substance: ZOPICLONE
     Dosage: 1 DOSAGE FORM, QD (1 EVERY 1 DAYS)
     Route: 065
  142. ZOPICLONE [Suspect]
     Active Substance: ZOPICLONE
     Dosage: 1 DOSAGE FORM, QD (1 EVERY 1 DAYS)
     Route: 065
  143. ZOPICLONE [Suspect]
     Active Substance: ZOPICLONE
     Dosage: 1 DOSAGE FORM, QD (1 EVERY 1 DAYS)
     Route: 065
  144. ACETAMINOPHEN\CAFFEINE\CODEINE PHOSPHATE [Concomitant]
     Active Substance: ACETAMINOPHEN\CAFFEINE\CODEINE PHOSPHATE
     Indication: Product used for unknown indication
     Route: 065
  145. CEFUROXIME SODIUM [Concomitant]
     Active Substance: CEFUROXIME SODIUM
     Indication: Product used for unknown indication
     Route: 065
  146. CEPHALEXIN [Concomitant]
     Active Substance: CEPHALEXIN
     Indication: Product used for unknown indication
     Route: 065
  147. DANAZOL [Concomitant]
     Active Substance: DANAZOL
     Indication: Product used for unknown indication
     Route: 065
  148. CYMBALTA [Concomitant]
     Active Substance: DULOXETINE HYDROCHLORIDE
     Indication: Product used for unknown indication
     Route: 065
  149. FERROUS FUMARATE [Concomitant]
     Active Substance: FERROUS FUMARATE
     Indication: Product used for unknown indication
     Route: 065
  150. FLUOXETINE HYDROCHLORIDE [Concomitant]
     Active Substance: FLUOXETINE HYDROCHLORIDE
     Indication: Product used for unknown indication
     Route: 065
  151. FLUTICASONE [Concomitant]
     Active Substance: FLUTICASONE
     Indication: Product used for unknown indication
     Route: 065
  152. FROVATRIPTAN SUCCINATE [Concomitant]
     Active Substance: FROVATRIPTAN SUCCINATE
     Indication: Product used for unknown indication
     Route: 065
  153. CLARITHROMYCIN [Concomitant]
     Active Substance: CLARITHROMYCIN
     Indication: Product used for unknown indication
     Route: 065
  154. POLYETHYLENE GLYCOL 3350 [Concomitant]
     Active Substance: POLYETHYLENE GLYCOL 3350
     Indication: Product used for unknown indication
     Route: 065
  155. METOCLOPRAMIDE [Concomitant]
     Active Substance: METOCLOPRAMIDE
     Indication: Product used for unknown indication
     Route: 065
  156. METRONIDAZOLE [Concomitant]
     Active Substance: METRONIDAZOLE
     Indication: Product used for unknown indication
     Route: 065
  157. MORPHINE SULFATE [Concomitant]
     Active Substance: MORPHINE SULFATE
     Indication: Product used for unknown indication
     Route: 065
  158. NAPROXEN [Concomitant]
     Active Substance: NAPROXEN
     Indication: Product used for unknown indication
     Route: 065
  159. OSELTAMIVIR [Concomitant]
     Active Substance: OSELTAMIVIR
     Indication: Product used for unknown indication
     Route: 065
  160. PANTOPRAZOLE SODIUM [Concomitant]
     Active Substance: PANTOPRAZOLE SODIUM
     Indication: Product used for unknown indication
     Route: 065
  161. SULFADIAZINE\TRIMETHOPRIM [Concomitant]
     Active Substance: SULFADIAZINE\TRIMETHOPRIM
     Indication: Product used for unknown indication
     Route: 065

REACTIONS (9)
  - Angioedema [Unknown]
  - Drug intolerance [Unknown]
  - Dysphonia [Unknown]
  - Headache [Unknown]
  - Hypersensitivity [Unknown]
  - Swelling face [Unknown]
  - Swollen tongue [Unknown]
  - Drug ineffective for unapproved indication [Unknown]
  - Off label use [Unknown]
